FAERS Safety Report 5728523-3 (Version None)
Quarter: 2008Q2

REPORT INFORMATION
  Report Type: 
  Country: None (occurrence: None)
  Receive Date: 20080506
  Receipt Date: 20070920
  Transmission Date: 20081010
  Serious: No
  Sender: FDA-Public Use
  Company Number: A0683352A

PATIENT
  Age: 42 Year
  Sex: Female

DRUGS (3)
  1. AMOXIL [Suspect]
     Dosage: 2G AS REQUIRED
     Route: 048
  2. AMOXIL [Suspect]
     Indication: DRUG USE FOR UNKNOWN INDICATION
     Dosage: 2G AS REQUIRED
     Route: 048
  3. NO CONCURRENT MEDICATION [Concomitant]

REACTIONS (1)
  - DIARRHOEA [None]
